FAERS Safety Report 10263265 (Version 1)
Quarter: 2014Q2

REPORT INFORMATION
  Report Type: Spontaneous
  Country: US (occurrence: US)
  Receive Date: 20140626
  Receipt Date: 20140626
  Transmission Date: 20141212
  Serious: No
  Sender: FDA-Public Use
  Company Number: US-GILEAD-2014-0106560

PATIENT
  Age: 55 Year
  Sex: Female

DRUGS (12)
  1. LETAIRIS [Suspect]
     Indication: COR PULMONALE CHRONIC
     Dosage: 10 MG, QD
     Route: 065
     Dates: start: 20140521
  2. PROAIR                             /00139502/ [Concomitant]
  3. ALBUTEROL                          /00139501/ [Concomitant]
  4. ADVAIR [Concomitant]
  5. NICODERM [Concomitant]
  6. MELOXICAM [Concomitant]
  7. HYDROCODONE/ACETAMINOPHEN          /01554201/ [Concomitant]
  8. FUROSEMIDE [Concomitant]
  9. RISPERIDONE [Concomitant]
  10. FAMOTIDINE [Concomitant]
  11. SINGULAIR [Concomitant]
  12. SPIRONOLACTONE [Concomitant]

REACTIONS (2)
  - Nasal congestion [Not Recovered/Not Resolved]
  - Vomiting [Not Recovered/Not Resolved]
